FAERS Safety Report 16659485 (Version 1)
Quarter: 2019Q3

REPORT INFORMATION
  Report Type: Spontaneous
  Country: US (occurrence: US)
  Receive Date: 20190802
  Receipt Date: 20190802
  Transmission Date: 20191004
  Serious: Yes (Hospitalization)
  Sender: FDA-Public Use
  Company Number: US-PACIRA-201900137

PATIENT
  Age: 42 Year
  Sex: Female
  Weight: 74 kg

DRUGS (2)
  1. EXPAREL [Suspect]
     Active Substance: BUPIVACAINE
     Indication: INGUINAL HERNIA REPAIR
     Dosage: INJECTED WITH EXPAREL AND MARCAINE
     Dates: start: 20190422, end: 20190422
  2. MARCAINE [Suspect]
     Active Substance: BUPIVACAINE HYDROCHLORIDE
     Indication: INGUINAL HERNIA REPAIR
     Dates: start: 20190422, end: 20190422

REACTIONS (4)
  - Injection site reaction [Recovered/Resolved]
  - Vomiting [Recovered/Resolved]
  - Subcutaneous emphysema [Recovered/Resolved]
  - Nausea [Recovered/Resolved]

NARRATIVE: CASE EVENT DATE: 20190425
